FAERS Safety Report 12696759 (Version 1)
Quarter: 2016Q3

REPORT INFORMATION
  Report Type: Spontaneous
  Country: US (occurrence: None)
  Receive Date: 20160829
  Receipt Date: 20160829
  Transmission Date: 20161109
  Serious: Yes (Other)
  Sender: FDA-Public Use
  Company Number: None

PATIENT

DRUGS (1)
  1. GONIOVISC OPHTHALMIC LUBRICANT [Suspect]
     Active Substance: HYPROMELLOSES
     Indication: EYE DISORDER
     Dosage: OPHTHALMIC?
     Route: 047
     Dates: start: 20160301, end: 20160806

REACTIONS (2)
  - Corneal abrasion [None]
  - Corneal oedema [None]
